FAERS Safety Report 4429090-7 (Version None)
Quarter: 2004Q3

REPORT INFORMATION
  Report Type: 
  Country: None (occurrence: None)
  Receive Date: 20040726
  Receipt Date: 20040311
  Transmission Date: 20050211
  Serious: No
  Sender: FDA-Public Use
  Company Number: USA040361867

PATIENT
  Age: 72 Year
  Sex: Female

DRUGS (2)
  1. FORTEO [Suspect]
     Indication: BONE DISORDER
     Dates: start: 20040101
  2. ENBREL [Concomitant]

REACTIONS (3)
  - DERMATITIS EXFOLIATIVE [None]
  - PRURITUS [None]
  - PRURITUS GENERALISED [None]
